FAERS Safety Report 15920678 (Version 1)
Quarter: 2019Q1

REPORT INFORMATION
  Report Type: Spontaneous
  Country: CA (occurrence: CA)
  Receive Date: 20190205
  Receipt Date: 20190205
  Transmission Date: 20190417
  Serious: Yes (Other)
  Sender: FDA-Public Use
  Company Number: CA-FRESENIUS KABI-FK201901251

PATIENT
  Age: 22 Year
  Sex: Female

DRUGS (7)
  1. VASOPRESSIN INJECTION (MANUFACTURER UNKNOWN) [Suspect]
     Active Substance: VASOPRESSIN
     Indication: MULTI-ORGAN DISORDER
     Dosage: 0.04 UNITS/MINUTE
     Route: 065
  2. NOREPINEPHRINE. [Suspect]
     Active Substance: NOREPINEPHRINE
     Indication: MULTI-ORGAN DISORDER
     Route: 065
  3. NOREPINEPHRINE. [Suspect]
     Active Substance: NOREPINEPHRINE
     Indication: CARDIOGENIC SHOCK
     Dosage: UNKNOWN
     Route: 065
  4. VASOPRESSIN INJECTION (MANUFACTURER UNKNOWN) [Suspect]
     Active Substance: VASOPRESSIN
     Indication: CARDIOGENIC SHOCK
     Dosage: UNKNOWN
     Route: 065
  5. LABETALOL [Concomitant]
     Active Substance: LABETALOL\LABETALOL HYDROCHLORIDE
     Indication: PRODUCT USED FOR UNKNOWN INDICATION
     Route: 065
  6. MILRINONE (MANUFACTURER UNKOWN) [Suspect]
     Active Substance: MILRINONE
     Indication: CARDIOGENIC SHOCK
     Dosage: UNKNOWN
     Route: 065
  7. MILRINONE (MANUFACTURER UNKOWN) [Suspect]
     Active Substance: MILRINONE
     Indication: MULTI-ORGAN DISORDER
     Route: 065

REACTIONS (1)
  - Drug ineffective [Recovered/Resolved]
